FAERS Safety Report 8915131 (Version 2)
Quarter: 2012Q4

REPORT INFORMATION
  Report Type: 
  Country: SE (occurrence: SE)
  Receive Date: 20121119
  Receipt Date: 20121212
  Transmission Date: 20130627
  Serious: Yes (Hospitalization, Other)
  Sender: FDA-Public Use
  Company Number: SE-JNJFOC-20121107816

PATIENT
  Age: 71 Year
  Weight: 115 kg

DRUGS (8)
  1. XARELTO [Suspect]
     Indication: THROMBOSIS PROPHYLAXIS
     Route: 048
     Dates: start: 20120618, end: 20120624
  2. XARELTO [Suspect]
     Indication: KNEE ARTHROPLASTY
     Route: 048
     Dates: start: 20120618, end: 20120624
  3. TROMBYL [Suspect]
     Indication: PRODUCT USED FOR UNKNOWN INDICATION
     Route: 048
     Dates: start: 20120624, end: 20120624
  4. NAPROXEN SODIUM [Suspect]
     Indication: PRODUCT USED FOR UNKNOWN INDICATION
     Route: 065
     Dates: start: 20120618, end: 20120624
  5. SERETIDE [Concomitant]
     Indication: ASTHMA
     Route: 065
  6. FELODIPIN [Concomitant]
     Route: 065
  7. SALURES [Concomitant]
     Route: 065
  8. CIPROXIN NOS [Concomitant]
     Indication: ARTHRITIS INFECTIVE
     Route: 065

REACTIONS (5)
  - Surgery [Unknown]
  - Haemorrhagic diathesis [Unknown]
  - Haemarthrosis [Recovered/Resolved with Sequelae]
  - Staphylococcal infection [Unknown]
  - Petechiae [Unknown]
